FAERS Safety Report 25401678 (Version 1)
Quarter: 2025Q2

REPORT INFORMATION
  Report Type: Spontaneous
  Country: US (occurrence: None)
  Receive Date: 20250604
  Receipt Date: 20250604
  Transmission Date: 20250716
  Serious: Yes (Hospitalization)
  Sender: FDA-CTU
  Company Number: None

PATIENT
  Age: 45 Year
  Sex: Female

DRUGS (2)
  1. CAPECITABINE [Suspect]
     Active Substance: CAPECITABINE
     Dates: start: 20250506, end: 20250604
  2. TUKYSA [Suspect]
     Active Substance: TUCATINIB
     Dates: start: 20250506, end: 20250604

REACTIONS (6)
  - Dehydration [None]
  - Palmar-plantar erythrodysaesthesia syndrome [None]
  - Oral mucosal blistering [None]
  - Nausea [None]
  - Vomiting [None]
  - Diarrhoea [None]

NARRATIVE: CASE EVENT DATE: 20250604
